FAERS Safety Report 6718687 (Version 9)
Quarter: 2019Q2

REPORT INFORMATION
  Report Type: Spontaneous
  Country: US (occurrence: US)
  Receive Date: 20080805
  Receipt Date: 20190408
  Transmission Date: 20190711
  Serious: Yes (Hospitalization, Other)
  Sender: FDA-Public Use
  Company Number: US-ROCHE-552207

PATIENT
  Age: 17 Year
  Sex: Male
  Weight: 83.9 kg

DRUGS (2)
  1. ACCUTANE [Suspect]
     Active Substance: ISOTRETINOIN
     Indication: ACNE CYSTIC
     Route: 065
     Dates: start: 19950515, end: 19950713
  2. ACCUTANE [Suspect]
     Active Substance: ISOTRETINOIN
     Route: 065
     Dates: start: 19950714, end: 19951015

REACTIONS (8)
  - Inflammatory bowel disease [Unknown]
  - Epistaxis [Unknown]
  - Impetigo [Unknown]
  - Ankylosing spondylitis [Unknown]
  - Pouchitis [Recovered/Resolved with Sequelae]
  - Xerosis [Not Recovered/Not Resolved]
  - Anxiety [Unknown]
  - Colitis ulcerative [Recovered/Resolved with Sequelae]

NARRATIVE: CASE EVENT DATE: 19950613
